FAERS Safety Report 6566992-X (Version None)
Quarter: 2010Q1

REPORT INFORMATION
  Report Type: 
  Country: None (occurrence: None)
  Receive Date: 20100202
  Receipt Date: 20100129
  Transmission Date: 20100710
  Serious: Yes (Hospitalization)
  Sender: FDA-Public Use
  Company Number: AU-MERCK-0903AUS00044

PATIENT
  Age: 71 Year
  Sex: Female

DRUGS (4)
  1. FOSAMAX PLUS D [Suspect]
     Route: 048
     Dates: start: 20081201
  2. FOSAMAX [Suspect]
     Route: 048
     Dates: start: 20060901, end: 20081201
  3. ACETAMINOPHEN AND PROPOXYPHENE HYDROCHLORIDE [Concomitant]
     Route: 065
  4. ACETAMINOPHEN [Concomitant]
     Route: 065

REACTIONS (1)
  - WRIST FRACTURE [None]
